FAERS Safety Report 9452248 (Version 3)
Quarter: 2013Q3

REPORT INFORMATION
  Report Type: Spontaneous
  Country: US (occurrence: US)
  Receive Date: 20130812
  Receipt Date: 20130910
  Transmission Date: 20140515
  Serious: Yes (Hospitalization, Disabling)
  Sender: FDA-Public Use
  Company Number: US-BRISTOL-MYERS SQUIBB COMPANY-19178425

PATIENT
  Age: 59 Year
  Sex: Female

DRUGS (6)
  1. ABILIFY TABS [Suspect]
     Indication: BIPOLAR I DISORDER
     Route: 048
     Dates: start: 20050103
  2. ABILIFY MAINTENA INJECTION [Suspect]
     Indication: BIPOLAR I DISORDER
     Dosage: ON UNK DATE DOSE WAS INCREASED TO 400 MG
     Route: 030
     Dates: start: 20030703
  3. LAMICTAL [Concomitant]
  4. AMBIEN [Concomitant]
  5. LISINOPRIL [Concomitant]
  6. HYDROCHLOROTHIAZIDE [Concomitant]

REACTIONS (4)
  - Renal failure [Unknown]
  - Hyperglycaemia [Unknown]
  - Musculoskeletal chest pain [Unknown]
  - Off label use [Unknown]
